FAERS Safety Report 4624265-6 (Version None)
Quarter: 2005Q1

REPORT INFORMATION
  Report Type: 
  Country: None (occurrence: None)
  Receive Date: 20050330
  Receipt Date: 20050330
  Transmission Date: 20050727
  Serious: Yes (Death)
  Sender: FDA-Public Use
  Company Number: None

PATIENT
  Age: 17 Year
  Sex: Male

DRUGS (6)
  1. NEURONTIN [Suspect]
     Indication: ATTENTION DEFICIT/HYPERACTIVITY DISORDER
     Dosage: 1600MG DAILY
     Dates: start: 19980101, end: 20000101
  2. DESOXYN [Concomitant]
  3. REMERON [Concomitant]
  4. WELLBUTRIN [Concomitant]
  5. AMBIEN [Concomitant]
  6. EFFEXER [Concomitant]

REACTIONS (1)
  - COMPLETED SUICIDE [None]
